FAERS Safety Report 5755019-5 (Version None)
Quarter: 2008Q2

REPORT INFORMATION
  Report Type: 
  Country: None (occurrence: None)
  Receive Date: 20080528
  Receipt Date: 20080528
  Transmission Date: 20081010
  Serious: Yes (Hospitalization)
  Sender: FDA-Public Use
  Company Number: None

PATIENT
  Age: 46 Year
  Sex: Male

DRUGS (1)
  1. ASPIRIN [Suspect]
     Indication: PAIN
     Dosage: 3 TAB PRN PO
     Route: 048
     Dates: start: 20080315, end: 20080328

REACTIONS (2)
  - GASTRIC HAEMORRHAGE [None]
  - UPPER GASTROINTESTINAL HAEMORRHAGE [None]
